FAERS Safety Report 8905324 (Version 1)
Quarter: 2012Q4

REPORT INFORMATION
  Report Type: 
  Country: IT (occurrence: IT)
  Receive Date: 20121109
  Receipt Date: 20121109
  Transmission Date: 20130627
  Serious: Yes (Hospitalization)
  Sender: FDA-Public Use
  Company Number: IT-ABBOTT-12P-083-1004459-00

PATIENT
  Age: 3 Year
  Sex: Male

DRUGS (1)
  1. DEPAKINE [Suspect]
     Indication: PRODUCT USED FOR UNKNOWN INDICATION
     Route: 048
     Dates: start: 20120806, end: 20120808

REACTIONS (2)
  - Amylase abnormal [Unknown]
  - Incorrect dose administered [Unknown]
